FAERS Safety Report 25516096 (Version 1)
Quarter: 2025Q3

REPORT INFORMATION
  Report Type: Spontaneous
  Country: US (occurrence: US)
  Receive Date: 20250704
  Receipt Date: 20250704
  Transmission Date: 20251020
  Serious: Yes (Other)
  Sender: SPECGX
  Company Number: US-SPECGX-T202501156

PATIENT
  Age: 77 Year
  Sex: Female

DRUGS (4)
  1. METHYLPHENIDATE HYDROCHLORIDE [Suspect]
     Active Substance: METHYLPHENIDATE HYDROCHLORIDE
     Indication: Depression
     Dosage: 5 MILLIGRAM, QD
     Route: 065
  2. TRANYLCYPROMINE [Suspect]
     Active Substance: TRANYLCYPROMINE
     Indication: Anxiety
     Route: 065
  3. TRANYLCYPROMINE [Suspect]
     Active Substance: TRANYLCYPROMINE
     Indication: Depression
  4. LINEZOLID [Suspect]
     Active Substance: LINEZOLID
     Indication: Enterococcal infection
     Route: 065

REACTIONS (4)
  - Enterococcal infection [Unknown]
  - Sepsis [Recovered/Resolved]
  - Drug effective for unapproved indication [Unknown]
  - Contraindicated product administered [Unknown]
